FAERS Safety Report 4334069-X (Version None)
Quarter: 2004Q2

REPORT INFORMATION
  Report Type: 
  Country: None (occurrence: None)
  Receive Date: 20040402
  Receipt Date: 20040325
  Transmission Date: 20050107
  Serious: Yes (Death)
  Sender: FDA-Public Use
  Company Number: 2004194247BR

PATIENT
  Age: 40 Year
  Sex: Female
  Weight: 76 kg

DRUGS (5)
  1. CELECOXIB VS PLACEBO (CELECOXIB VS PLACEBO) CAPSULE [Suspect]
     Indication: SCHIZOPHRENIA
     Dosage: UNK, BID, ORAL
     Route: 048
     Dates: start: 20021009
  2. RISPERIDONE [Suspect]
     Indication: SCHIZOPHRENIA
     Dosage: 2 MG, BID, UNK
     Dates: start: 20030925
  3. ZOPICLONE [Concomitant]
  4. HYDROCHLOROTHIAZIDE [Concomitant]
  5. PROPRANOLOL [Concomitant]

REACTIONS (2)
  - COMPLETED SUICIDE [None]
  - MULTIPLE DRUG OVERDOSE [None]
